FAERS Safety Report 7305125-9 (Version None)
Quarter: 2011Q1

REPORT INFORMATION
  Report Type: 
  Country: None (occurrence: None)
  Receive Date: 20110222
  Receipt Date: 20110212
  Transmission Date: 20110831
  Serious: Yes (Hospitalization)
  Sender: FDA-Public Use
  Company Number: US-JNJFOC-20110204555

PATIENT
  Sex: Male
  Weight: 72.58 kg

DRUGS (6)
  1. SIMVASTATIN [Concomitant]
  2. ARICEPT [Concomitant]
  3. LISINOPRIL [Concomitant]
  4. HYDROCHLOROTHIAZIDE [Concomitant]
  5. AMLODIPINE [Concomitant]
  6. ST. JOSEPH ENTERIC COATED [Suspect]
     Indication: ANTICOAGULANT THERAPY
     Route: 048

REACTIONS (2)
  - PRODUCT QUALITY ISSUE [None]
  - THROMBOSIS [None]
